FAERS Safety Report 7476299-4 (Version None)
Quarter: 2011Q2

REPORT INFORMATION
  Report Type: 
  Country: None (occurrence: None)
  Receive Date: 20110512
  Receipt Date: 20110506
  Transmission Date: 20111010
  Serious: Yes (Death)
  Sender: FDA-Public Use
  Company Number: GXBR2011US01457

PATIENT
  Sex: Female
  Weight: 34.467 kg

DRUGS (9)
  1. DOXEPIN [Concomitant]
     Dosage: 80 MG, QD
     Dates: start: 20101101
  2. MULTIVITAMIN ^LAPPE^ [Concomitant]
     Dosage: UNK DF, UNK
  3. FERROUS SULFATE TAB [Concomitant]
     Indication: IRON DEFICIENCY ANAEMIA
     Dosage: 65 MG, TID
     Route: 048
     Dates: start: 20101101
  4. CARBATROL [Concomitant]
     Dosage: UNK MG, UNK
  5. FLAXSEED OIL [Concomitant]
     Dosage: UNK MG, UNK
  6. MUPIROCIN [Concomitant]
     Dosage: 2 %, UNK
  7. VITAMIN C [Concomitant]
     Dosage: UNK MG, UNK
  8. COLOSTRUM [Concomitant]
     Dosage: UNK DF, UNK
  9. OMNITROPE [Suspect]
     Indication: GROWTH HORMONE DEFICIENCY
     Dosage: 1.5 MG, QD
     Route: 058
     Dates: start: 20110321, end: 20110324

REACTIONS (3)
  - NASOPHARYNGITIS [None]
  - DEATH [None]
  - URTICARIA [None]
